FAERS Safety Report 4627066-8 (Version None)
Quarter: 2005Q1

REPORT INFORMATION
  Report Type: 
  Country: None (occurrence: None)
  Receive Date: 20050331
  Receipt Date: 20050325
  Transmission Date: 20050727
  Serious: Yes (Other)
  Sender: FDA-Public Use
  Company Number: KII-2005-0015614

PATIENT
  Age: 76 Year
  Sex: Female

DRUGS (2)
  1. MORPHINE SULFATE [Suspect]
     Indication: PAIN
     Dosage: SEE TEXT, INTRAVENOUS
     Route: 042
     Dates: start: 20050301
  2. MEPERIDINE HCL [Suspect]
     Indication: PAIN
     Dosage: SEE TEXT, INTRAVENOUS
     Route: 042
     Dates: start: 20050301

REACTIONS (3)
  - BRADYCARDIA [None]
  - COMA [None]
  - HYPOTENSION [None]
